FAERS Safety Report 7737650-0 (Version None)
Quarter: 2011Q3

REPORT INFORMATION
  Report Type: 
  Country: None (occurrence: None)
  Receive Date: 20110902
  Receipt Date: 20110826
  Transmission Date: 20111222
  Serious: Yes (Life-Threatening, Hospitalization)
  Sender: FDA-Public Use
  Company Number: ABR_00231_2011

PATIENT
  Age: 65 Year
  Sex: Male

DRUGS (8)
  1. OMEPRAZOLE [Concomitant]
  2. TOPIRAMATE [Suspect]
     Indication: HEADACHE
     Dosage: 100 MG, 100 MG (50 MG, 2 IN 1 D), ORAL
     Route: 048
     Dates: start: 20100702, end: 20110709
  3. NORTRIPTYLINE HCL [Concomitant]
  4. ACETAMINOPHEN [Concomitant]
  5. RIZATRIPTAN [Concomitant]
  6. ERYTHROMYCIN [Suspect]
     Indication: OROPHARYNGEAL PAIN
     Dosage: 2000 MG, 2000 MG (500 MG, 4 IN 1 D), ORAL
     Route: 048
     Dates: start: 20110704, end: 20110708
  7. TRAMADOL HCL [Concomitant]
  8. ALBUTEROL [Concomitant]

REACTIONS (4)
  - DYSPNOEA [None]
  - DYSPHAGIA [None]
  - DYSPHONIA [None]
  - MYASTHENIA GRAVIS [None]
